FAERS Safety Report 18880538 (Version 1)
Quarter: 2021Q1

REPORT INFORMATION
  Report Type: Spontaneous
  Country: US (occurrence: US)
  Receive Date: 20210212
  Receipt Date: 20210212
  Transmission Date: 20210420
  Serious: No
  Sender: FDA-Public Use
  Company Number: US-CELGENEUS-USA-20210201668

PATIENT
  Sex: Female
  Weight: 57.2 kg

DRUGS (5)
  1. REBLOZYL [Suspect]
     Active Substance: LUSPATERCEPT-AAMT
     Route: 065
     Dates: start: 20210112
  2. ANTIBIOTICS [Concomitant]
     Active Substance: UNSPECIFIED INGREDIENT
     Indication: PRODUCT USED FOR UNKNOWN INDICATION
     Route: 065
  3. IRON CHELATOR [Concomitant]
     Indication: PRODUCT USED FOR UNKNOWN INDICATION
     Route: 065
  4. REBLOZYL [Suspect]
     Active Substance: LUSPATERCEPT-AAMT
     Indication: THALASSAEMIA
     Route: 065
     Dates: start: 20201210
  5. METFORMIN [Concomitant]
     Active Substance: METFORMIN HYDROCHLORIDE
     Indication: DIABETES MELLITUS
     Route: 065

REACTIONS (5)
  - Sinus disorder [Unknown]
  - Vertigo [Unknown]
  - Vomiting [Unknown]
  - Fatigue [Unknown]
  - Blood cholesterol increased [Unknown]
